FAERS Safety Report 7678502-4 (Version None)
Quarter: 2011Q3

REPORT INFORMATION
  Report Type: 
  Country: None (occurrence: None)
  Receive Date: 20110811
  Receipt Date: 20110801
  Transmission Date: 20111222
  Serious: Yes (Hospitalization)
  Sender: FDA-Public Use
  Company Number: FR-BAXTER-2011BH025221

PATIENT
  Age: 46 Year
  Sex: Male

DRUGS (12)
  1. GAMMAGARD LIQUID [Suspect]
     Indication: WEGENER'S GRANULOMATOSIS
     Route: 042
     Dates: start: 20110301, end: 20110628
  2. GAMMAGARD LIQUID [Suspect]
     Route: 042
     Dates: start: 20110301, end: 20110628
  3. GAMMAGARD LIQUID [Suspect]
     Route: 042
     Dates: start: 20110301, end: 20110628
  4. GAMMAGARD LIQUID [Suspect]
     Route: 042
     Dates: start: 20110301, end: 20110628
  5. COUMADIN [Concomitant]
     Indication: PULMONARY EMBOLISM
     Route: 048
  6. CALCIDOSE VITAMINE D [Concomitant]
     Indication: OSTEOPOROSIS PROPHYLAXIS
     Route: 048
     Dates: start: 20110301
  7. PREDNISONE [Concomitant]
     Indication: WEGENER'S GRANULOMATOSIS
     Route: 048
  8. GAMMAGARD LIQUID [Suspect]
     Route: 042
     Dates: start: 20110301, end: 20110628
  9. GAMMAGARD LIQUID [Suspect]
     Route: 042
     Dates: start: 20110301, end: 20110628
  10. CYCLOPHOSPHAMIDE [Suspect]
     Indication: WEGENER'S GRANULOMATOSIS
     Route: 048
     Dates: start: 20110330, end: 20110628
  11. ACTONEL [Concomitant]
     Indication: OSTEOPOROSIS PROPHYLAXIS
     Route: 048
  12. BACTRIM DS [Suspect]
     Indication: PROPHYLAXIS
     Route: 048
     Dates: end: 20110628

REACTIONS (1)
  - ECZEMA [None]
